FAERS Safety Report 22049862 (Version 1)
Quarter: 2023Q1

REPORT INFORMATION
  Report Type: Spontaneous
  Country: US (occurrence: None)
  Receive Date: 20230301
  Receipt Date: 20230301
  Transmission Date: 20230418
  Serious: Yes (Other)
  Sender: FDA-Public Use
  Company Number: 2023A044204

PATIENT
  Age: 25641 Day
  Sex: Male
  Weight: 184.6 kg

DRUGS (23)
  1. NEXIUM [Suspect]
     Active Substance: ESOMEPRAZOLE MAGNESIUM
     Route: 048
     Dates: start: 20121005
  2. ARTHROTEC [Concomitant]
     Active Substance: DICLOFENAC SODIUM\MISOPROSTOL
  3. CYMBALTA [Concomitant]
     Active Substance: DULOXETINE HYDROCHLORIDE
  4. DIGOXIN [Concomitant]
     Active Substance: DIGOXIN
  5. FUROSEMIDE [Concomitant]
     Active Substance: FUROSEMIDE
  6. JANUVIA [Concomitant]
     Active Substance: SITAGLIPTIN PHOSPHATE
  7. QUINAPRIL [Concomitant]
     Active Substance: QUINAPRIL
  8. POTASSIUM CHLORIDE [Concomitant]
     Active Substance: POTASSIUM CHLORIDE
  9. VITAMIN D [Concomitant]
     Active Substance: VITAMIN D NOS
  10. OXYCODONE [Concomitant]
     Active Substance: OXYCODONE
  11. DOCUSATE SODIUM [Concomitant]
     Active Substance: DOCUSATE SODIUM
  12. SPECTAZOLE [Concomitant]
     Active Substance: ECONAZOLE NITRATE
  13. XARELTO [Concomitant]
     Active Substance: RIVAROXABAN
  14. LINZESS [Concomitant]
     Active Substance: LINACLOTIDE
  15. FENTANYL [Concomitant]
     Active Substance: FENTANYL
  16. DEXAMETHASONE [Concomitant]
     Active Substance: DEXAMETHASONE
  17. HYDROMORPHONE [Concomitant]
     Active Substance: HYDROMORPHONE
  18. SUGAMMADEX [Concomitant]
     Active Substance: SUGAMMADEX
  19. BENADRYL [Concomitant]
     Active Substance: DIPHENHYDRAMINE HYDROCHLORIDE
  20. HEPARIN [Concomitant]
     Active Substance: HEPARIN SODIUM
  21. IBUPROFEN [Concomitant]
     Active Substance: IBUPROFEN
  22. LORAZEPAM [Concomitant]
     Active Substance: LORAZEPAM
  23. ONDANSETRON [Concomitant]
     Active Substance: ONDANSETRON

REACTIONS (1)
  - Gastric cancer [Unknown]

NARRATIVE: CASE EVENT DATE: 20200130
